FAERS Safety Report 16012661 (Version 1)
Quarter: 2019Q1

REPORT INFORMATION
  Report Type: Spontaneous
  Country: US (occurrence: US)
  Receive Date: 20190226
  Receipt Date: 20190226
  Transmission Date: 20190418
  Serious: Yes (Hospitalization, Disabling, Other)
  Sender: FDA-Public Use
  Company Number: None

PATIENT
  Sex: Female
  Weight: 61.23 kg

DRUGS (1)
  1. METHYLPREDNISOLONE INJECTION WITH ULTRASOUND IN WRIST [Suspect]
     Active Substance: METHYLPREDNISOLONE
     Indication: TENOSYNOVITIS STENOSANS
     Dosage: INJECTED WRONG OR IT WAS A RECALL

REACTIONS (10)
  - Stress [None]
  - Lipoatrophy [None]
  - Injection site scar [None]
  - Pain [None]
  - Skin atrophy [None]
  - Neuropathy peripheral [None]
  - Temperature intolerance [None]
  - Post procedural complication [None]
  - Bone erosion [None]
  - Skin discolouration [None]
